FAERS Safety Report 16217618 (Version 1)
Quarter: 2020Q3

REPORT INFORMATION
  Report Type: Report from Study
  Country: AU (occurrence: AU)
  Receive Date: 20190419
  Receipt Date: 20190419
  Transmission Date: 20201105
  Serious: Yes (Hospitalization, Other)
  Sender: FDA-Public Use
  Company Number: PHHO2019AU003376

PATIENT
  Age: 64 Year
  Sex: Female
  Weight: 80 kg

DRUGS (10)
  1. SABATOLIMAB. [Suspect]
     Active Substance: SABATOLIMAB
     Indication: ACUTE MYELOID LEUKAEMIA
     Dosage: 400 MG, Q2W
     Route: 042
     Dates: start: 20190225
  2. SABATOLIMAB. [Suspect]
     Active Substance: SABATOLIMAB
     Indication: MYELODYSPLASTIC SYNDROME
  3. VALACICLOVIR [Concomitant]
     Active Substance: VALACYCLOVIR HYDROCHLORIDE
     Indication: PRODUCT USED FOR UNKNOWN INDICATION
     Dosage: 500 MG, QD
     Route: 048
     Dates: start: 20190218
  4. DECITABINE. [Suspect]
     Active Substance: DECITABINE
     Indication: MYELODYSPLASTIC SYNDROME
  5. POSACONAZOLE [Concomitant]
     Active Substance: POSACONAZOLE
     Indication: PRODUCT USED FOR UNKNOWN INDICATION
     Dosage: 300 MG, QD
     Route: 048
     Dates: start: 20190218
  6. PDR001 [Suspect]
     Active Substance: SPARTALIZUMAB
     Indication: MYELODYSPLASTIC SYNDROME
  7. DECITABINE. [Suspect]
     Active Substance: DECITABINE
     Indication: ACUTE MYELOID LEUKAEMIA
     Dosage: 38 MG, Q4W
     Route: 042
     Dates: start: 20190218
  8. AUGMENTIN DUO FORTE [Concomitant]
     Active Substance: AMOXICILLIN\CLAVULANATE POTASSIUM
     Indication: DIARRHOEA
     Dosage: 1 UNK TIW
     Route: 048
     Dates: start: 20190202
  9. PDR001 [Suspect]
     Active Substance: SPARTALIZUMAB
     Indication: ACUTE MYELOID LEUKAEMIA
     Dosage: 400 MG, Q4W
     Route: 042
     Dates: start: 20190225
  10. BACTRIM [Concomitant]
     Active Substance: SULFAMETHOXAZOLE\TRIMETHOPRIM
     Indication: PYREXIA
     Dosage: 1 DF, QD
     Route: 048
     Dates: start: 20190320

REACTIONS (3)
  - Klebsiella sepsis [Not Recovered/Not Resolved]
  - Sepsis [Recovering/Resolving]
  - Febrile neutropenia [Not Recovered/Not Resolved]

NARRATIVE: CASE EVENT DATE: 20190321
